FAERS Safety Report 6878685-X (Version None)
Quarter: 2010Q3

REPORT INFORMATION
  Report Type: 
  Country: None (occurrence: None)
  Receive Date: 20100728
  Receipt Date: 20100721
  Transmission Date: 20110219
  Serious: Yes (Hospitalization, Other)
  Sender: FDA-Public Use
  Company Number: B0665808A

PATIENT
  Sex: Female
  Weight: 55 kg

DRUGS (41)
  1. LAMICTAL [Suspect]
     Indication: PRODUCT USED FOR UNKNOWN INDICATION
     Route: 065
  2. LAMICTAL [Suspect]
     Indication: EPILEPSY
     Dates: start: 19930513
  3. LAMICTAL [Suspect]
     Route: 065
     Dates: start: 19930801
  4. LAMICTAL [Suspect]
     Route: 065
     Dates: start: 19950501
  5. LAMICTAL [Suspect]
     Route: 065
     Dates: start: 19960601
  6. LAMICTAL [Suspect]
     Route: 065
     Dates: start: 20001011
  7. VALPROATE SODIUM [Suspect]
     Indication: EPILEPSY
     Route: 065
     Dates: start: 19930513
  8. VALPROATE SODIUM [Suspect]
     Indication: PRODUCT USED FOR UNKNOWN INDICATION
     Route: 065
     Dates: start: 19960605, end: 19960626
  9. TRILEPTAL [Suspect]
     Indication: PRODUCT USED FOR UNKNOWN INDICATION
     Route: 065
  10. TRILEPTAL [Suspect]
     Route: 065
     Dates: end: 20010921
  11. TRILEPTAL [Suspect]
     Indication: EPILEPSY
     Route: 065
     Dates: start: 19910812
  12. TEGRETOL [Suspect]
     Indication: EPILEPSY
     Route: 065
  13. TEGRETOL [Suspect]
     Indication: EPILEPSY
     Dosage: 1200MG PER DAY
     Route: 065
  14. TEGRETOL [Suspect]
     Indication: PRODUCT USED FOR UNKNOWN INDICATION
     Dosage: 1700MG PER DAY
     Route: 065
     Dates: start: 19910528, end: 19910812
  15. CLONAZEPAM [Concomitant]
     Indication: EPILEPSY
  16. VITAMINERAL [Concomitant]
  17. B VITAMIN [Concomitant]
  18. TRIPHASIL-21 [Concomitant]
  19. ROHYPNOL [Concomitant]
     Indication: SLEEP DISORDER
  20. UNKNOWN DRUG [Concomitant]
     Dates: start: 19910701
  21. NOZINAN [Concomitant]
     Indication: SLEEP DISORDER
     Dosage: 5MG AT NIGHT
     Dates: start: 19930301
  22. UNKNOWN DRUG [Concomitant]
     Indication: ANXIETY
  23. FENEMAL [Concomitant]
     Dates: start: 19900101
  24. EPINAT [Concomitant]
     Indication: EPILEPSY
     Dates: end: 19930406
  25. BRICANYL [Concomitant]
  26. RHINOCORT [Concomitant]
  27. SEREVENT [Concomitant]
  28. PAROXETINE HCL [Concomitant]
     Indication: DEPRESSION
  29. VALPROATE SODIUM [Concomitant]
     Dosage: 300MG PER DAY
     Dates: start: 19960101
  30. THYROXIN SODIUM [Concomitant]
     Dates: start: 19960101
  31. ZYRTEC [Concomitant]
  32. IDO-E [Concomitant]
  33. VITAMINS [Concomitant]
  34. PULMICORT [Concomitant]
  35. LIVOSTIN [Concomitant]
  36. VIOXX [Concomitant]
     Dosage: 12.5MG PER DAY
  37. RHINOCORT [Concomitant]
  38. APYDAN [Concomitant]
     Dosage: 900MG TWICE PER DAY
  39. VIVAL [Concomitant]
     Dosage: 5MG TWICE PER DAY
     Dates: start: 19930101
  40. CIPRAMIL [Concomitant]
     Indication: TENSION
     Dates: start: 19960815
  41. DIAMOX SRC [Concomitant]
     Indication: EPILEPSY
     Dates: start: 19990201

REACTIONS (48)
  - ABDOMINAL PAIN LOWER [None]
  - ALOPECIA [None]
  - AMENORRHOEA [None]
  - ANXIETY [None]
  - ARTHRITIS [None]
  - ASTHMA [None]
  - BACK PAIN [None]
  - BLOOD SODIUM DECREASED [None]
  - CONSTIPATION [None]
  - DECREASED APPETITE [None]
  - DEPRESSION [None]
  - DIPLOPIA [None]
  - DIZZINESS [None]
  - DRUG INEFFECTIVE [None]
  - DYSPHAGIA [None]
  - EAR INFECTION [None]
  - EAR PRURITUS [None]
  - EATING DISORDER [None]
  - FATIGUE [None]
  - FOOD ALLERGY [None]
  - GENERALISED OEDEMA [None]
  - GINGIVAL HYPERPLASIA [None]
  - HEADACHE [None]
  - HEPATIC ENZYME INCREASED [None]
  - HYPERSENSITIVITY [None]
  - HYPOMETABOLISM [None]
  - INSOMNIA [None]
  - LISTLESS [None]
  - LOCAL SWELLING [None]
  - MEMORY IMPAIRMENT [None]
  - MENSTRUAL DISORDER [None]
  - MYALGIA [None]
  - NAUSEA [None]
  - OEDEMA PERIPHERAL [None]
  - PANIC ATTACK [None]
  - PETECHIAE [None]
  - PHOTOSENSITIVITY REACTION [None]
  - PRURITUS [None]
  - RASH [None]
  - RASH PRURITIC [None]
  - SLEEP DISORDER [None]
  - SOMNOLENCE [None]
  - STATUS EPILEPTICUS [None]
  - SUICIDAL IDEATION [None]
  - SUICIDE ATTEMPT [None]
  - TOOTH DISORDER [None]
  - VISUAL IMPAIRMENT [None]
  - WEIGHT INCREASED [None]
